FAERS Safety Report 8291862-9 (Version None)
Quarter: 2012Q2

REPORT INFORMATION
  Report Type: 
  Country: None (occurrence: None)
  Receive Date: 20120417
  Receipt Date: 20120409
  Transmission Date: 20120825
  Serious: Yes (Hospitalization, Other)
  Sender: FDA-Public Use
  Company Number: US-ELI_LILLY_AND_COMPANY-US201202005696

PATIENT
  Sex: Female
  Weight: 41.27 kg

DRUGS (4)
  1. FORTEO [Suspect]
     Dosage: 20 UG, QD
     Route: 058
  2. ANTIHYPERTENSIVES [Concomitant]
  3. DIURETICS [Concomitant]
  4. BETA BLOCKING AGENTS [Concomitant]

REACTIONS (4)
  - SYNCOPE [None]
  - FALL [None]
  - ARRHYTHMIA [None]
  - SUBDURAL HAEMATOMA [None]
